FAERS Safety Report 7756211-0 (Version None)
Quarter: 2011Q3

REPORT INFORMATION
  Report Type: 
  Country: None (occurrence: None)
  Receive Date: 20110916
  Receipt Date: 20110719
  Transmission Date: 20111222
  Serious: No
  Sender: FDA-Public Use
  Company Number: US-ABBOTT-11P-163-0840755-00

PATIENT
  Sex: Male

DRUGS (2)
  1. TRILIPIX [Suspect]
     Indication: PRODUCT USED FOR UNKNOWN INDICATION
  2. CRESTOR [Concomitant]
     Indication: PRODUCT USED FOR UNKNOWN INDICATION

REACTIONS (6)
  - THERAPEUTIC RESPONSE UNEXPECTED [None]
  - APNOEA [None]
  - FATIGUE [None]
  - ABNORMAL DREAMS [None]
  - POOR QUALITY SLEEP [None]
  - DYSPNOEA [None]
